FAERS Safety Report 7794870-7 (Version None)
Quarter: 2011Q4

REPORT INFORMATION
  Report Type: 
  Country: None (occurrence: None)
  Receive Date: 20111004
  Receipt Date: 20110922
  Transmission Date: 20120403
  Serious: Yes (Other)
  Sender: FDA-Public Use
  Company Number: PHHY2011JP61123

PATIENT
  Age: 37 Year
  Sex: Male

DRUGS (5)
  1. MYCOPHENOLATE MOFETIL [Concomitant]
  2. GUSPERIMUS HYDROCHLORIDE [Concomitant]
  3. STEROIDS NOS [Concomitant]
  4. METHYLPREDNISOLONE [Concomitant]
     Dosage: 2 MG, UNK
  5. GLEEVEC [Suspect]
     Indication: CHRONIC MYELOID LEUKAEMIA
     Dosage: 200 MG, DAILY

REACTIONS (1)
  - RENAL IMPAIRMENT [None]
